FAERS Safety Report 8936456 (Version 1)
Quarter: 2012Q4

REPORT INFORMATION
  Report Type: 
  Country: FR (occurrence: FR)
  Receive Date: 20121130
  Receipt Date: 20121130
  Transmission Date: 20130627
  Serious: Yes (Hospitalization)
  Sender: FDA-Public Use
  Company Number: FR-ASTRAZENECA-2012SE89038

PATIENT
  Age: 32933 Day
  Sex: Male

DRUGS (4)
  1. INEXIUM [Suspect]
     Route: 048
  2. VALDOXAN [Suspect]
     Indication: DEPRESSION
     Route: 048
     Dates: start: 20120920, end: 20121025
  3. ALPRAZOLAM [Suspect]
     Indication: ANXIETY
     Route: 048
     Dates: start: 20120910
  4. RENITEC [Suspect]
     Indication: HYPERTENSION
     Route: 048

REACTIONS (2)
  - Erysipelas [Unknown]
  - Hyponatraemia [Not Recovered/Not Resolved]
